FAERS Safety Report 7029273-6 (Version None)
Quarter: 2010Q3

REPORT INFORMATION
  Report Type: 
  Country: None (occurrence: None)
  Receive Date: 20100924
  Receipt Date: 20091119
  Transmission Date: 20110219
  Serious: Yes (Hospitalization)
  Sender: FDA-Public Use
  Company Number: WAES 0911USA03612

PATIENT
  Age: 53 Year
  Sex: Male

DRUGS (1)
  1. VYTORIN [Suspect]
     Indication: HYPERCHOLESTEROLAEMIA
     Dosage: 10/10 MG/DAILY/PO
     Route: 048
     Dates: start: 20050119, end: 20080101

REACTIONS (2)
  - CHOLELITHIASIS [None]
  - GASTROINTESTINAL DISORDER [None]
